FAERS Safety Report 8261469-8 (Version None)
Quarter: 2012Q2

REPORT INFORMATION
  Report Type: 
  Country: None (occurrence: None)
  Receive Date: 20120405
  Receipt Date: 20120328
  Transmission Date: 20120825
  Serious: Yes (Hospitalization)
  Sender: FDA-Public Use
  Company Number: US-BAYER-2011-099019

PATIENT
  Age: 42 Year
  Sex: Female
  Weight: 77.098 kg

DRUGS (1)
  1. YAZ [Suspect]
     Dosage: UNK
     Dates: start: 20080101, end: 20091004

REACTIONS (4)
  - LYMPHOEDEMA [None]
  - PAIN [None]
  - DEEP VEIN THROMBOSIS [None]
  - DEPRESSION [None]
